FAERS Safety Report 10227719 (Version 1)
Quarter: 2014Q2

REPORT INFORMATION
  Report Type: Spontaneous
  Country: US (occurrence: US)
  Receive Date: 20140610
  Receipt Date: 20140610
  Transmission Date: 20141212
  Serious: No
  Sender: FDA-Public Use
  Company Number: US-PFIZER INC-2014154839

PATIENT
  Age: 86 Year
  Sex: Female
  Weight: 65.76 kg

DRUGS (2)
  1. LEVOXYL [Suspect]
     Indication: HYPOTHYROIDISM
     Dosage: (ONE AND A QUARTER TABLET OF 50 UG) 1X/DAY
     Route: 048
     Dates: start: 20140303
  2. PREMARIN [Concomitant]
     Indication: MOOD SWINGS
     Dosage: 0.6 MG, 3X/WEEK
     Route: 048

REACTIONS (4)
  - Depression [Unknown]
  - Tinnitus [Unknown]
  - Tremor [Unknown]
  - Abnormal behaviour [Unknown]
